FAERS Safety Report 19624902 (Version 2)
Quarter: 2021Q3

REPORT INFORMATION
  Report Type: Report from Study
  Country: AU (occurrence: AU)
  Receive Date: 20210728
  Receipt Date: 20210819
  Transmission Date: 20211014
  Serious: Yes (Other)
  Sender: FDA-Public Use
  Company Number: NVSC2021AU050526

PATIENT
  Age: 81 Year
  Sex: Female

DRUGS (2)
  1. MAYZENT [Suspect]
     Active Substance: SIPONIMOD
     Dosage: 2 MG, QD
     Route: 048
     Dates: start: 20210215, end: 20210228
  2. MAYZENT [Suspect]
     Active Substance: SIPONIMOD
     Indication: SECONDARY PROGRESSIVE MULTIPLE SCLEROSIS
     Dosage: 2 MG, QD
     Route: 048
     Dates: start: 20210208

REACTIONS (12)
  - Pain [Not Recovered/Not Resolved]
  - Fall [Unknown]
  - Hypotonia [Unknown]
  - Dysstasia [Unknown]
  - Immunosuppression [Unknown]
  - Inappropriate schedule of product discontinuation [Unknown]
  - Cough [Not Recovered/Not Resolved]
  - Infection [Unknown]
  - Lymphocyte count decreased [Unknown]
  - Malaise [Unknown]
  - Fear of disease [Unknown]
  - Asthenia [Not Recovered/Not Resolved]

NARRATIVE: CASE EVENT DATE: 20210211
